FAERS Safety Report 24722575 (Version 1)
Quarter: 2024Q4

REPORT INFORMATION
  Report Type: Spontaneous
  Country: RU (occurrence: RU)
  Receive Date: 20241211
  Receipt Date: 20241211
  Transmission Date: 20250114
  Serious: Yes (Other)
  Sender: ROCHE
  Company Number: RU-ROCHE-10000151667

PATIENT
  Age: 75 Year
  Sex: Female

DRUGS (6)
  1. TRASTUZUMAB [Suspect]
     Active Substance: TRASTUZUMAB
     Indication: Breast cancer stage II
     Dosage: (LOADING DOSE 8MG/KG)
     Route: 042
     Dates: start: 20210210, end: 202202
  2. PERTUZUMAB [Suspect]
     Active Substance: PERTUZUMAB
     Indication: Breast cancer stage II
     Dosage: (LOADING DOSE 840MG) FOR 6 CYCLE
     Route: 042
     Dates: start: 20210210, end: 202202
  3. CAPECITABINE [Suspect]
     Active Substance: CAPECITABINE
     Indication: Breast cancer stage II
     Route: 065
  4. ADO-TRASTUZUMAB EMTANSINE [Suspect]
     Active Substance: ADO-TRASTUZUMAB EMTANSINE
     Indication: Breast cancer stage II
     Route: 065
     Dates: start: 202306
  5. DOCETAXEL [Suspect]
     Active Substance: DOCETAXEL
     Indication: Breast cancer stage II
     Route: 042
     Dates: start: 20210210, end: 202202
  6. CARBOPLATIN [Suspect]
     Active Substance: CARBOPLATIN
     Indication: Breast cancer stage II
     Route: 042
     Dates: start: 20210210, end: 202202

REACTIONS (2)
  - Metastases to liver [Unknown]
  - Stomatitis [Unknown]
